FAERS Safety Report 16663250 (Version 1)
Quarter: 2019Q3

REPORT INFORMATION
  Report Type: Report from Study
  Country: US (occurrence: US)
  Receive Date: 20190802
  Receipt Date: 20190802
  Transmission Date: 20191004
  Serious: No
  Sender: FDA-Public Use
  Company Number: US-EXELIXIS-CABO-19020398

PATIENT
  Sex: Female

DRUGS (1)
  1. CABOMETYX [Suspect]
     Active Substance: CABOZANTINIB S-MALATE
     Indication: LUNG NEOPLASM MALIGNANT
     Dosage: 20 MG, UNK

REACTIONS (7)
  - Headache [Unknown]
  - Nausea [Unknown]
  - Tinnitus [Unknown]
  - Oxygen saturation decreased [Unknown]
  - Vomiting [Unknown]
  - Off label use [Unknown]
  - Fatigue [Unknown]
